FAERS Safety Report 6433037-1 (Version None)
Quarter: 2009Q4

REPORT INFORMATION
  Report Type: 
  Country: None (occurrence: None)
  Receive Date: 20091105
  Receipt Date: 20091027
  Transmission Date: 20100525
  Serious: Yes (Other)
  Sender: FDA-Public Use
  Company Number: 8050586

PATIENT
  Age: 43 Year
  Sex: Female

DRUGS (1)
  1. KEPPRA [Suspect]
     Dosage: 3000 MG /D

REACTIONS (3)
  - BRAIN NEOPLASM [None]
  - FUNGAL INFECTION [None]
  - VAGINAL INFECTION [None]
